FAERS Safety Report 10622235 (Version 1)
Quarter: 2014Q4

REPORT INFORMATION
  Report Type: Spontaneous
  Country: US (occurrence: None)
  Receive Date: 20141201
  Receipt Date: 20141201
  Transmission Date: 20150529
  Serious: Yes (Hospitalization)
  Sender: FDA-Public Use
  Company Number: None

PATIENT
  Sex: Male

DRUGS (2)
  1. TEMOZOLOMIDE. [Suspect]
     Active Substance: TEMOZOLOMIDE
     Indication: SOFT TISSUE SARCOMA
     Dosage: TEMOZOLOMIDE 100 MG  QHS  PO
     Route: 048
     Dates: start: 20140228, end: 20140901
  2. TEMOZOLOMIDE. [Suspect]
     Active Substance: TEMOZOLOMIDE
     Indication: SOFT TISSUE SARCOMA
     Dosage: TEMOZOLOMIDE 20 MG  QHS  PO
     Route: 048
     Dates: start: 20140228, end: 20140901

REACTIONS (1)
  - Malaise [None]

NARRATIVE: CASE EVENT DATE: 20140901
